FAERS Safety Report 5449409-8 (Version None)
Quarter: 2007Q3

REPORT INFORMATION
  Report Type: 
  Country: None (occurrence: None)
  Receive Date: 20070911
  Receipt Date: 20070831
  Transmission Date: 20080115
  Serious: Yes (Other)
  Sender: FDA-Public Use
  Company Number: GB-PFIZER INC-2007073245

PATIENT
  Sex: Male

DRUGS (3)
  1. ISTIN [Suspect]
     Indication: HYPERTENSION
     Route: 048
  2. ATORVASTATIN [Concomitant]
  3. CODEINE PHOSPHATE AND ACETAMINOPHEN [Concomitant]

REACTIONS (1)
  - RESTLESS LEGS SYNDROME [None]
